FAERS Safety Report 7048954-1 (Version None)
Quarter: 2010Q4

REPORT INFORMATION
  Report Type: 
  Country: None (occurrence: None)
  Receive Date: 20101012
  Receipt Date: 20100929
  Transmission Date: 20110411
  Serious: Yes (Hospitalization)
  Sender: FDA-Public Use
  Company Number: 2010MA003145

PATIENT
  Age: 58 Year
  Sex: Female

DRUGS (9)
  1. METOCLOPRAMIDE [Suspect]
     Dosage: 10 MG;AC;PO
     Route: 048
  2. MIRTAZAPINE [Suspect]
     Indication: DECREASED APPETITE
     Dosage: 15 MG;HS;PO
     Route: 048
  3. MIRTAZAPINE [Suspect]
     Indication: SOMNOLENCE
     Dosage: 15 MG;HS;PO
     Route: 048
  4. PANTOPRAZOLE [Concomitant]
  5. PARACETAMOL [Concomitant]
  6. ENOXAPARIN SODIUM [Concomitant]
  7. NYSTATIN [Concomitant]
  8. CEFEPIME [Concomitant]
  9. LEVOFLOXACIN [Suspect]
     Dosage: 500 MG;OD;PO
     Route: 048

REACTIONS (10)
  - BLOOD CALCIUM DECREASED [None]
  - BLOOD SODIUM DECREASED [None]
  - DISORIENTATION [None]
  - DRUG INTERACTION [None]
  - FAECAL INCONTINENCE [None]
  - GRAND MAL CONVULSION [None]
  - HAEMOGLOBIN DECREASED [None]
  - KLEBSIELLA BACTERAEMIA [None]
  - PYREXIA [None]
  - RASH [None]
